FAERS Safety Report 4774693-3 (Version None)
Quarter: 2005Q3

REPORT INFORMATION
  Report Type: 
  Country: None (occurrence: None)
  Receive Date: 20050921
  Receipt Date: 20050513
  Transmission Date: 20060218
  Serious: Yes (Hospitalization)
  Sender: FDA-Public Use
  Company Number: CA-MERCK-0508CAN00217

PATIENT
  Age: 64 Year
  Sex: Male
  Weight: 80 kg

DRUGS (12)
  1. VIOXX [Suspect]
     Indication: ARTHRITIS
     Route: 048
     Dates: start: 20030301, end: 20030713
  2. VIOXX [Suspect]
     Route: 048
     Dates: start: 20030301, end: 20030713
  3. ENALAPRIL MALEATE [Concomitant]
     Indication: HYPERTENSION
     Route: 065
     Dates: start: 20001201
  4. ZOPICLONE [Concomitant]
     Indication: SLEEP DISORDER THERAPY
     Route: 065
  5. METOPROLOL [Concomitant]
     Indication: HYPERTENSION
     Route: 065
  6. RAMIPRIL [Concomitant]
     Indication: HYPERTENSION
     Route: 065
     Dates: start: 20001201
  7. BUDESONIDE [Concomitant]
     Indication: ASBESTOSIS
     Route: 065
     Dates: start: 20011101
  8. ALBUTEROL SULFATE [Concomitant]
     Indication: ASBESTOSIS
     Route: 065
     Dates: start: 20011101
  9. DIMENHYDRINATE [Concomitant]
     Indication: ASTHMA
     Route: 065
  10. DIMENHYDRINATE [Concomitant]
     Indication: HYPERSENSITIVITY
     Route: 065
  11. ACETAMINOPHEN [Concomitant]
     Indication: PAIN
     Route: 065
  12. [THERAPY UNSPECIFIED] [Concomitant]
     Route: 065
     Dates: start: 20001001

REACTIONS (22)
  - ACUTE MYOCARDIAL INFARCTION [None]
  - ANXIETY [None]
  - ATELECTASIS [None]
  - ATRIAL FIBRILLATION [None]
  - CARDIOMEGALY [None]
  - CHEST PAIN [None]
  - CONGESTIVE CARDIOMYOPATHY [None]
  - CORONARY ARTERY DISEASE [None]
  - CORONARY ARTERY OCCLUSION [None]
  - DEPRESSION [None]
  - FLATULENCE [None]
  - HALLUCINATION [None]
  - HYPERHIDROSIS [None]
  - MITRAL VALVE INCOMPETENCE [None]
  - MYOCARDIAL ISCHAEMIA [None]
  - OESOPHAGEAL PAIN [None]
  - PNEUMONIA [None]
  - PNEUMOTHORAX [None]
  - POST PROCEDURAL COMPLICATION [None]
  - PROTHROMBIN TIME PROLONGED [None]
  - VENTRICULAR HYPOKINESIA [None]
  - WHITE BLOOD CELL COUNT INCREASED [None]
